FAERS Safety Report 20148494 (Version 8)
Quarter: 2022Q4

REPORT INFORMATION
  Report Type: Report from Study
  Country: US (occurrence: US)
  Receive Date: 20211205
  Receipt Date: 20221014
  Transmission Date: 20230112
  Serious: Yes (Hospitalization, Other)
  Sender: FDA-Public Use
  Company Number: US-EXELIXIS-CABO-21046646

PATIENT
  Age: 63 Year
  Sex: Male
  Weight: 65 kg

DRUGS (117)
  1. OPDIVO [Suspect]
     Active Substance: NIVOLUMAB
     Indication: Renal cell carcinoma
     Dosage: 240MG/24ML
     Route: 065
     Dates: start: 202108
  2. OPDIVO [Suspect]
     Active Substance: NIVOLUMAB
  3. CABOMETYX [Suspect]
     Active Substance: CABOZANTINIB S-MALATE
     Indication: Metastatic renal cell carcinoma
     Dosage: 40 MG, QD
     Route: 048
     Dates: start: 202103, end: 202203
  4. CABOMETYX [Suspect]
     Active Substance: CABOZANTINIB S-MALATE
     Dosage: 40 MG, QD (MONDAY TO FRIDAY AND SKIP WEEKEND)
     Route: 048
  5. CABOMETYX [Suspect]
     Active Substance: CABOZANTINIB S-MALATE
     Dosage: 40 MG, QOD
     Route: 048
     Dates: end: 202201
  6. CABOMETYX [Suspect]
     Active Substance: CABOZANTINIB S-MALATE
     Dosage: 40 MG, QD (MONDAY TO FRIDAY AND SKIP WEEKEND)
     Route: 048
     Dates: start: 20220120, end: 202203
  7. CABOMETYX [Suspect]
     Active Substance: CABOZANTINIB S-MALATE
     Dosage: 40 MG, QD
     Route: 048
     Dates: start: 202202, end: 202202
  8. CABOMETYX [Suspect]
     Active Substance: CABOZANTINIB S-MALATE
     Dosage: 40 MG, QD (MONDAY TO FRIDAY AND SKIP WEEKEND)
     Route: 048
  9. CABOMETYX [Suspect]
     Active Substance: CABOZANTINIB S-MALATE
     Dosage: 40 MG, QD (MONDAY TO FRIDAY)
     Route: 048
     Dates: start: 202108
  10. CABOMETYX [Suspect]
     Active Substance: CABOZANTINIB S-MALATE
     Dosage: 40 MILLIGRAM, QOD
     Route: 048
     Dates: start: 202201
  11. CABOMETYX [Suspect]
     Active Substance: CABOZANTINIB S-MALATE
     Dosage: 40 MG, QD (MONDAY TO FRIDAY AND SKIP WEEKEND)
     Route: 048
  12. CABOMETYX [Suspect]
     Active Substance: CABOZANTINIB S-MALATE
     Dosage: 40 MG, QD (MONDAY TO FRIDAY AND SKIP WEEKEND)
     Route: 048
  13. CABOMETYX [Suspect]
     Active Substance: CABOZANTINIB S-MALATE
     Dosage: 40 MG, QD (MONDAY TO FRIDAY AND SKIP WEEKEND)
     Route: 048
  14. TRIAMCINOLONE [Concomitant]
     Active Substance: TRIAMCINOLONE
  15. TRIAMCINOLONE [Concomitant]
     Active Substance: TRIAMCINOLONE
     Indication: Product used for unknown indication
     Route: 065
  16. TRIAMCINOLONE [Concomitant]
     Active Substance: TRIAMCINOLONE
  17. TRIAMCINOLONE [Concomitant]
     Active Substance: TRIAMCINOLONE
  18. TRIAMCINOLONE [Concomitant]
     Active Substance: TRIAMCINOLONE
  19. TRIAMCINOLONE [Concomitant]
     Active Substance: TRIAMCINOLONE
  20. TRIAMCINOLONE [Concomitant]
     Active Substance: TRIAMCINOLONE
     Route: 065
  21. TRIAMCINOLONE [Concomitant]
     Active Substance: TRIAMCINOLONE
  22. TRIAMCINOLONE [Concomitant]
     Active Substance: TRIAMCINOLONE
  23. TRIAMCINOLONE [Concomitant]
     Active Substance: TRIAMCINOLONE
  24. SUTENT [Concomitant]
     Active Substance: SUNITINIB MALATE
  25. SUTENT [Concomitant]
     Active Substance: SUNITINIB MALATE
     Indication: Product used for unknown indication
     Dosage: UNK
     Route: 065
  26. SUTENT [Concomitant]
     Active Substance: SUNITINIB MALATE
  27. SUTENT [Concomitant]
     Active Substance: SUNITINIB MALATE
  28. SUTENT [Concomitant]
     Active Substance: SUNITINIB MALATE
  29. SUTENT [Concomitant]
     Active Substance: SUNITINIB MALATE
  30. SUTENT [Concomitant]
     Active Substance: SUNITINIB MALATE
     Dosage: UNK
     Route: 065
  31. SUTENT [Concomitant]
     Active Substance: SUNITINIB MALATE
  32. SUTENT [Concomitant]
     Active Substance: SUNITINIB MALATE
  33. SUTENT [Concomitant]
     Active Substance: SUNITINIB MALATE
  34. ANUCORT-HC [Concomitant]
     Active Substance: HYDROCORTISONE ACETATE
  35. ANUCORT-HC [Concomitant]
     Active Substance: HYDROCORTISONE ACETATE
     Indication: Product used for unknown indication
     Dosage: UNK
     Route: 065
  36. ANUCORT-HC [Concomitant]
     Active Substance: HYDROCORTISONE ACETATE
  37. ANUCORT-HC [Concomitant]
     Active Substance: HYDROCORTISONE ACETATE
  38. ANUCORT-HC [Concomitant]
     Active Substance: HYDROCORTISONE ACETATE
  39. ANUCORT-HC [Concomitant]
     Active Substance: HYDROCORTISONE ACETATE
  40. ANUCORT-HC [Concomitant]
     Active Substance: HYDROCORTISONE ACETATE
     Dosage: UNK
     Route: 065
  41. ANUCORT-HC [Concomitant]
     Active Substance: HYDROCORTISONE ACETATE
  42. ANUCORT-HC [Concomitant]
     Active Substance: HYDROCORTISONE ACETATE
  43. ANUCORT-HC [Concomitant]
     Active Substance: HYDROCORTISONE ACETATE
  44. COMPAZINE [Concomitant]
     Active Substance: PROCHLORPERAZINE MALEATE
  45. COMPAZINE [Concomitant]
     Active Substance: PROCHLORPERAZINE MALEATE
  46. COMPAZINE [Concomitant]
     Active Substance: PROCHLORPERAZINE MALEATE
  47. COMPAZINE [Concomitant]
     Active Substance: PROCHLORPERAZINE MALEATE
  48. COMPAZINE [Concomitant]
     Active Substance: PROCHLORPERAZINE MALEATE
  49. COMPAZINE [Concomitant]
     Active Substance: PROCHLORPERAZINE MALEATE
  50. COMPAZINE [Concomitant]
     Active Substance: PROCHLORPERAZINE MALEATE
  51. COMPAZINE [Concomitant]
     Active Substance: PROCHLORPERAZINE MALEATE
  52. HYDROCORTISONE [Concomitant]
     Active Substance: HYDROCORTISONE
  53. HYDROCORTISONE [Concomitant]
     Active Substance: HYDROCORTISONE
     Indication: Product used for unknown indication
     Dosage: UNK
     Route: 065
  54. HYDROCORTISONE [Concomitant]
     Active Substance: HYDROCORTISONE
  55. HYDROCORTISONE [Concomitant]
     Active Substance: HYDROCORTISONE
  56. HYDROCORTISONE [Concomitant]
     Active Substance: HYDROCORTISONE
  57. HYDROCORTISONE [Concomitant]
     Active Substance: HYDROCORTISONE
  58. HYDROCORTISONE [Concomitant]
     Active Substance: HYDROCORTISONE
     Dosage: UNK
     Route: 065
  59. HYDROCORTISONE [Concomitant]
     Active Substance: HYDROCORTISONE
  60. HYDROCORTISONE [Concomitant]
     Active Substance: HYDROCORTISONE
  61. HYDROCORTISONE [Concomitant]
     Active Substance: HYDROCORTISONE
  62. LEVOTHYROXINE [Concomitant]
     Active Substance: LEVOTHYROXINE
  63. LEVOTHYROXINE [Concomitant]
     Active Substance: LEVOTHYROXINE
     Indication: Product used for unknown indication
     Dosage: UNK
     Route: 065
  64. LEVOTHYROXINE [Concomitant]
     Active Substance: LEVOTHYROXINE
  65. LEVOTHYROXINE [Concomitant]
     Active Substance: LEVOTHYROXINE
  66. LEVOTHYROXINE [Concomitant]
     Active Substance: LEVOTHYROXINE
  67. LEVOTHYROXINE [Concomitant]
     Active Substance: LEVOTHYROXINE
  68. LEVOTHYROXINE [Concomitant]
     Active Substance: LEVOTHYROXINE
     Dosage: UNK
     Route: 065
  69. LEVOTHYROXINE [Concomitant]
     Active Substance: LEVOTHYROXINE
  70. LEVOTHYROXINE [Concomitant]
     Active Substance: LEVOTHYROXINE
  71. LEVOTHYROXINE [Concomitant]
     Active Substance: LEVOTHYROXINE
  72. LOMOTIL [Concomitant]
     Active Substance: ATROPINE SULFATE\DIPHENOXYLATE HYDROCHLORIDE
  73. LOMOTIL [Concomitant]
     Active Substance: ATROPINE SULFATE\DIPHENOXYLATE HYDROCHLORIDE
  74. LOMOTIL [Concomitant]
     Active Substance: ATROPINE SULFATE\DIPHENOXYLATE HYDROCHLORIDE
  75. LOMOTIL [Concomitant]
     Active Substance: ATROPINE SULFATE\DIPHENOXYLATE HYDROCHLORIDE
  76. LOMOTIL [Concomitant]
     Active Substance: ATROPINE SULFATE\DIPHENOXYLATE HYDROCHLORIDE
  77. LOMOTIL [Concomitant]
     Active Substance: ATROPINE SULFATE\DIPHENOXYLATE HYDROCHLORIDE
  78. LOMOTIL [Concomitant]
     Active Substance: ATROPINE SULFATE\DIPHENOXYLATE HYDROCHLORIDE
  79. LOMOTIL [Concomitant]
     Active Substance: ATROPINE SULFATE\DIPHENOXYLATE HYDROCHLORIDE
  80. MUPIROCIN [Concomitant]
     Active Substance: MUPIROCIN
  81. MUPIROCIN [Concomitant]
     Active Substance: MUPIROCIN
     Indication: Product used for unknown indication
     Dosage: UNK
     Route: 065
  82. MUPIROCIN [Concomitant]
     Active Substance: MUPIROCIN
  83. MUPIROCIN [Concomitant]
     Active Substance: MUPIROCIN
  84. MUPIROCIN [Concomitant]
     Active Substance: MUPIROCIN
  85. MUPIROCIN [Concomitant]
     Active Substance: MUPIROCIN
  86. MUPIROCIN [Concomitant]
     Active Substance: MUPIROCIN
     Dosage: UNK
     Route: 065
  87. MUPIROCIN [Concomitant]
     Active Substance: MUPIROCIN
  88. MUPIROCIN [Concomitant]
     Active Substance: MUPIROCIN
  89. MUPIROCIN [Concomitant]
     Active Substance: MUPIROCIN
  90. PERCOCET [Concomitant]
     Active Substance: ACETAMINOPHEN\OXYCODONE HYDROCHLORIDE
  91. PERCOCET [Concomitant]
     Active Substance: ACETAMINOPHEN\OXYCODONE HYDROCHLORIDE
  92. PERCOCET [Concomitant]
     Active Substance: ACETAMINOPHEN\OXYCODONE HYDROCHLORIDE
  93. PERCOCET [Concomitant]
     Active Substance: ACETAMINOPHEN\OXYCODONE HYDROCHLORIDE
  94. PERCOCET [Concomitant]
     Active Substance: ACETAMINOPHEN\OXYCODONE HYDROCHLORIDE
  95. PERCOCET [Concomitant]
     Active Substance: ACETAMINOPHEN\OXYCODONE HYDROCHLORIDE
  96. PERCOCET [Concomitant]
     Active Substance: ACETAMINOPHEN\OXYCODONE HYDROCHLORIDE
  97. PERCOCET [Concomitant]
     Active Substance: ACETAMINOPHEN\OXYCODONE HYDROCHLORIDE
  98. PROCHLORPERAZINE [Concomitant]
     Active Substance: PROCHLORPERAZINE
  99. PROCHLORPERAZINE [Concomitant]
     Active Substance: PROCHLORPERAZINE
     Indication: Product used for unknown indication
     Dosage: UNK
     Route: 065
  100. PROCHLORPERAZINE [Concomitant]
     Active Substance: PROCHLORPERAZINE
  101. PROCHLORPERAZINE [Concomitant]
     Active Substance: PROCHLORPERAZINE
  102. PROCHLORPERAZINE [Concomitant]
     Active Substance: PROCHLORPERAZINE
  103. PROCHLORPERAZINE [Concomitant]
     Active Substance: PROCHLORPERAZINE
  104. PROCHLORPERAZINE [Concomitant]
     Active Substance: PROCHLORPERAZINE
     Dosage: UNK
     Route: 065
  105. PROCHLORPERAZINE [Concomitant]
     Active Substance: PROCHLORPERAZINE
  106. PROCHLORPERAZINE [Concomitant]
     Active Substance: PROCHLORPERAZINE
  107. PROCHLORPERAZINE [Concomitant]
     Active Substance: PROCHLORPERAZINE
  108. VALIUM [Concomitant]
     Active Substance: DIAZEPAM
  109. VALIUM [Concomitant]
     Active Substance: DIAZEPAM
     Indication: Product used for unknown indication
     Dosage: UNK
     Route: 065
  110. VALIUM [Concomitant]
     Active Substance: DIAZEPAM
  111. VALIUM [Concomitant]
     Active Substance: DIAZEPAM
  112. VALIUM [Concomitant]
     Active Substance: DIAZEPAM
  113. VALIUM [Concomitant]
     Active Substance: DIAZEPAM
  114. VALIUM [Concomitant]
     Active Substance: DIAZEPAM
     Dosage: UNK
     Route: 065
  115. VALIUM [Concomitant]
     Active Substance: DIAZEPAM
  116. VALIUM [Concomitant]
     Active Substance: DIAZEPAM
  117. VALIUM [Concomitant]
     Active Substance: DIAZEPAM

REACTIONS (19)
  - Thrombosis [Unknown]
  - Gait disturbance [Unknown]
  - Limb discomfort [Unknown]
  - Blood chloride decreased [Not Recovered/Not Resolved]
  - Abdominal discomfort [Unknown]
  - Red blood cell count decreased [Unknown]
  - Diarrhoea [Recovering/Resolving]
  - Rash [Unknown]
  - Fatigue [Unknown]
  - Blood pressure increased [Unknown]
  - Blood calcium decreased [Unknown]
  - Asthenia [Unknown]
  - White blood cell count decreased [Not Recovered/Not Resolved]
  - Platelet count decreased [Recovering/Resolving]
  - Neutrophil count decreased [Not Recovered/Not Resolved]
  - Blood sodium decreased [Not Recovered/Not Resolved]
  - Adrenal insufficiency [Recovered/Resolved]
  - Hypothyroidism [Recovered/Resolved]
  - Malaise [Unknown]

NARRATIVE: CASE EVENT DATE: 20211201
